FAERS Safety Report 18533345 (Version 1)
Quarter: 2020Q4

REPORT INFORMATION
  Report Type: Spontaneous
  Country: US (occurrence: US)
  Receive Date: 20201120
  Receipt Date: 20201120
  Transmission Date: 20210114
  Serious: No
  Sender: FDA-Public Use
  Company Number: None

PATIENT
  Sex: Female

DRUGS (1)
  1. POLYMYXIN B SULFATE AND TRIMETHOPRIM OPHTHALMIC SOLUTION, USP [Suspect]
     Active Substance: POLYMYXIN B SULFATE\TRIMETHOPRIM SULFATE
     Indication: CORNEAL ABRASION
     Dosage: ?          OTHER STRENGTH:TRIMETHO.. 1 MG(ML;QUANTITY:1 DROP(S);OTHER FREQUENCY:EVERY 3 HOURS;?
     Route: 047
     Dates: start: 20201118, end: 20201120

REACTIONS (3)
  - Instillation site pain [None]
  - Instillation site pruritus [None]
  - Corneal exfoliation [None]

NARRATIVE: CASE EVENT DATE: 20201119
